FAERS Safety Report 13417018 (Version 3)
Quarter: 2017Q2

REPORT INFORMATION
  Report Type: Spontaneous
  Country: IT (occurrence: IT)
  Receive Date: 20170407
  Receipt Date: 20170411
  Transmission Date: 20170830
  Serious: Yes (Death)
  Sender: FDA-Public Use
  Company Number: IT-ASTRAZENECA-2017SE36121

PATIENT
  Age: 28582 Day
  Sex: Male
  Weight: 78 kg

DRUGS (9)
  1. RANITIDINE. [Concomitant]
     Active Substance: RANITIDINE
     Route: 048
  2. SOLDESAM [Concomitant]
     Active Substance: DEXAMETHASONE
     Dosage: 32 DROPS TWICE PER DAY
     Route: 048
  3. SEQUACOR [Concomitant]
     Active Substance: BISOPROLOL
     Indication: HYPERTENSION
  4. SELEPARINA [Concomitant]
     Active Substance: NADROPARIN CALCIUM
     Dosage: 2.850 IU ANTIXA/0.3 ML INJECTABLE SOLUTION IN PRE-FILLED SYRINGE,1 DOSAGE UNIT, INJECTABLE SOLUTION
     Route: 058
  5. SOLDESAM [Concomitant]
     Active Substance: DEXAMETHASONE
     Dosage: 0,2% ORAL DROPS, SOLUTION, 64 DROPS, ORAL DROPS, SOLUTION
     Route: 048
  6. TAMSULOSIN [Concomitant]
     Active Substance: TAMSULOSIN
     Indication: BENIGN PROSTATIC HYPERPLASIA
     Route: 048
  7. TAGRISSO [Suspect]
     Active Substance: OSIMERTINIB
     Indication: NON-SMALL CELL LUNG CANCER
     Route: 048
     Dates: start: 20170310, end: 20170320
  8. BLOPRESS [Concomitant]
     Active Substance: CANDESARTAN CILEXETIL
     Indication: HYPERTENSION
     Route: 048
  9. SPIRIVA [Concomitant]
     Active Substance: TIOTROPIUM BROMIDE MONOHYDRATE
     Route: 048

REACTIONS (1)
  - Pulmonary embolism [Fatal]

NARRATIVE: CASE EVENT DATE: 20170317
